FAERS Safety Report 5887597-X (Version None)
Quarter: 2008Q3

REPORT INFORMATION
  Report Type: 
  Country: None (occurrence: None)
  Receive Date: 20080918
  Receipt Date: 20080818
  Transmission Date: 20090109
  Serious: No
  Sender: FDA-Public Use
  Company Number: US-BAYER-200822840NA

PATIENT
  Age: 25 Year
  Sex: Female
  Weight: 88 kg

DRUGS (1)
  1. MIRENA [Suspect]
     Indication: CONTRACEPTION
     Route: 015
     Dates: start: 20050201

REACTIONS (6)
  - ABDOMINAL PAIN LOWER [None]
  - COITAL BLEEDING [None]
  - DYSPAREUNIA [None]
  - NAUSEA [None]
  - PAIN IN EXTREMITY [None]
  - PELVIC PAIN [None]
